FAERS Safety Report 7546522-6 (Version None)
Quarter: 2011Q2

REPORT INFORMATION
  Report Type: 
  Country: None (occurrence: None)
  Receive Date: 20110607
  Receipt Date: 20110523
  Transmission Date: 20111010
  Serious: Yes (Life-Threatening, Hospitalization, Other)
  Sender: FDA-Public Use
  Company Number: 2011MA006237

PATIENT
  Age: 53 Year
  Sex: Male

DRUGS (2)
  1. FLUDARABINE PHOSPHATE [Suspect]
     Indication: LYMPHOMA
  2. RITUXIMAB [Concomitant]

REACTIONS (18)
  - CONFUSIONAL STATE [None]
  - BLOOD PRESSURE DECREASED [None]
  - PALLOR [None]
  - AGITATION [None]
  - HAEMATOCRIT DECREASED [None]
  - ALANINE AMINOTRANSFERASE INCREASED [None]
  - BLOOD LACTATE DEHYDROGENASE INCREASED [None]
  - ACUTE RESPIRATORY DISTRESS SYNDROME [None]
  - RESPIRATORY RATE INCREASED [None]
  - HYPOVOLAEMIC SHOCK [None]
  - PULMONARY TOXICITY [None]
  - HAEMOPTYSIS [None]
  - HEART RATE INCREASED [None]
  - ASPARTATE AMINOTRANSFERASE INCREASED [None]
  - TACHYPNOEA [None]
  - HAEMOGLOBIN DECREASED [None]
  - DYSPNOEA [None]
  - FATIGUE [None]
